FAERS Safety Report 17422458 (Version 1)
Quarter: 2020Q1

REPORT INFORMATION
  Report Type: Spontaneous
  Country: US (occurrence: US)
  Receive Date: 20200215
  Receipt Date: 20200215
  Transmission Date: 20200409
  Serious: Yes (Death, Hospitalization)
  Sender: FDA-Public Use
  Company Number: US-EMCURE PHARMACEUTICALS LTD-2020-EPL-0152

PATIENT
  Age: 42 Year
  Sex: Male

DRUGS (2)
  1. CIDOFOVIR. [Suspect]
     Active Substance: CIDOFOVIR
     Indication: ADENOVIRUS INFECTION
  2. CIDOFOVIR. [Suspect]
     Active Substance: CIDOFOVIR
     Indication: COMMUNITY ACQUIRED INFECTION
     Dosage: RECEIVED 2 DOSES, ONE ON HOSPITAL DAY 10 AND SECOND ON DAY 17
     Route: 065

REACTIONS (3)
  - Off label use [Unknown]
  - Disease progression [Fatal]
  - Treatment failure [Fatal]
